FAERS Safety Report 20578193 (Version 1)
Quarter: 2022Q1

REPORT INFORMATION
  Report Type: Spontaneous
  Country: US (occurrence: None)
  Receive Date: 20220310
  Receipt Date: 20220310
  Transmission Date: 20220423
  Serious: Yes (unspecified)
  Sender: FDA-Public Use
  Company Number: None

PATIENT
  Age: 56 Year
  Sex: Male

DRUGS (11)
  1. SOTROVIMAB [Suspect]
     Active Substance: SOTROVIMAB
     Indication: COVID-19
     Dosage: FREQUENCY : ONCE;?
     Route: 042
     Dates: start: 20220309, end: 20220309
  2. acetaminophen (TYLENOL) 325 mg tablet [Concomitant]
  3. aspirin 81 mg tablet [Concomitant]
  4. atorvastatin (LIPITOR) 10 mg tablet [Concomitant]
  5. insulin lispro 100 unit/mL injection [Concomitant]
  6. insulin regular hum U-500 conc (HumuLIN R U-500, Conc, Kwikpen) [Concomitant]
  7. levETIRAcetam XR (KEPPRA XR) 500 mg 24 hr tablet [Concomitant]
  8. lisinopriL (ZESTRIL) 40 mg tablet [Concomitant]
  9. metoprolol tartrate (LOPRESSOR) 50 mg tablet BID [Concomitant]
  10. naproxen (NAPROSYN) 500 mg tablet [Concomitant]
  11. omeprazole (PriLOSEC) 20 mg capsule BID [Concomitant]

REACTIONS (6)
  - Hypotension [None]
  - Nausea [None]
  - Blood glucose increased [None]
  - Hypotension [None]
  - Cold sweat [None]
  - Hyperhidrosis [None]

NARRATIVE: CASE EVENT DATE: 20220309
